FAERS Safety Report 4394388-8 (Version None)
Quarter: 2004Q3

REPORT INFORMATION
  Report Type: 
  Country: None (occurrence: None)
  Receive Date: 20040709
  Receipt Date: 20040709
  Transmission Date: 20050211
  Serious: Yes (Life-Threatening, Hospitalization)
  Sender: FDA-Public Use
  Company Number: None

PATIENT
  Age: 68 Year
  Sex: Female
  Weight: 64 kg

DRUGS (1)
  1. TAXOL [Suspect]
     Dates: start: 20040706

REACTIONS (2)
  - DEVICE FAILURE [None]
  - MYOCARDIAL INFARCTION [None]
